FAERS Safety Report 22717982 (Version 6)
Quarter: 2025Q1

REPORT INFORMATION
  Report Type: Report from Study
  Country: US (occurrence: US)
  Receive Date: 20230718
  Receipt Date: 20250328
  Transmission Date: 20250409
  Serious: Yes (Other)
  Sender: ABBVIE
  Company Number: US-ABBVIE-5330777

PATIENT
  Age: 69 Year
  Sex: Female
  Weight: 91.171 kg

DRUGS (2)
  1. SKYRIZI [Suspect]
     Active Substance: RISANKIZUMAB-RZAA
     Indication: Psoriasis
     Dosage: FROM STRENGTH:150 MG
     Route: 058
     Dates: start: 20211122
  2. SKYRIZI [Suspect]
     Active Substance: RISANKIZUMAB-RZAA
     Dosage: FROM STRENGTH:150 MG
     Route: 058
     Dates: start: 20211220

REACTIONS (9)
  - Lung neoplasm malignant [Not Recovered/Not Resolved]
  - Illness [Not Recovered/Not Resolved]
  - Fatigue [Not Recovered/Not Resolved]
  - Food poisoning [Recovered/Resolved]
  - Malaise [Unknown]
  - Infection [Unknown]
  - COVID-19 [Recovering/Resolving]
  - Pharyngeal swelling [Unknown]
  - Dysphagia [Unknown]

NARRATIVE: CASE EVENT DATE: 20230101
